FAERS Safety Report 7016787-8 (Version None)
Quarter: 2010Q3

REPORT INFORMATION
  Report Type: 
  Country: None (occurrence: None)
  Receive Date: 20100927
  Receipt Date: 20100913
  Transmission Date: 20110219
  Serious: Yes (Other)
  Sender: FDA-Public Use
  Company Number: GB-ELI_LILLY_AND_COMPANY-GB201009003559

PATIENT
  Sex: Male

DRUGS (3)
  1. OLANZAPINE [Suspect]
     Dosage: 5 MG, DAILY (1/D)
     Route: 030
  2. OLANZAPINE [Interacting]
     Dosage: 10 MG, DAILY (1/D)
     Route: 030
  3. METHADONE HCL [Interacting]

REACTIONS (2)
  - DRUG INTERACTION [None]
  - NARCOTIC INTOXICATION [None]
